FAERS Safety Report 9518476 (Version 1)
Quarter: 2013Q3

REPORT INFORMATION
  Report Type: Spontaneous
  Country: US (occurrence: US)
  Receive Date: 20130912
  Receipt Date: 20130912
  Transmission Date: 20140515
  Serious: No
  Sender: FDA-Public Use
  Company Number: US-BAYER-2013-109757

PATIENT
  Age: 94 Year
  Sex: Female
  Weight: 48 kg

DRUGS (4)
  1. ALEVE GELCAPS [Suspect]
     Indication: BACK PAIN
     Dosage: UNK DF, UNK
     Route: 048
  2. ALEVE GELCAPS [Suspect]
     Indication: BACK PAIN
     Dosage: 2 DF, UNK
     Route: 048
     Dates: start: 20130905
  3. BENAZEPRIL [Concomitant]
  4. LEVOTHYROXINE [Concomitant]

REACTIONS (1)
  - Pruritus [Recovered/Resolved]
